FAERS Safety Report 7896087-4 (Version None)
Quarter: 2011Q4

REPORT INFORMATION
  Report Type: 
  Country: None (occurrence: None)
  Receive Date: 20111106
  Receipt Date: 20110906
  Transmission Date: 20120403
  Serious: No
  Sender: FDA-Public Use
  Company Number: US-AMGEN-USASP2011041409

PATIENT
  Age: 49 Year
  Sex: Female
  Weight: 79.365 kg

DRUGS (2)
  1. ENBREL [Suspect]
     Indication: PSORIASIS
  2. ENBREL [Suspect]
     Indication: PSORIATIC ARTHROPATHY
     Dosage: 50 MG, QWK
     Route: 058
     Dates: start: 20110405

REACTIONS (4)
  - INJECTION SITE PRURITUS [None]
  - INJECTION SITE MASS [None]
  - INJECTION SITE SWELLING [None]
  - INJECTION SITE PAIN [None]
